FAERS Safety Report 9830119 (Version 1)
Quarter: 2014Q1

REPORT INFORMATION
  Report Type: Spontaneous
  Country: US (occurrence: US)
  Receive Date: 20140120
  Receipt Date: 20140120
  Transmission Date: 20141002
  Serious: No
  Sender: FDA-Public Use
  Company Number: US-BAYER-2014-009399

PATIENT
  Age: 17 Year
  Sex: Male

DRUGS (1)
  1. GADAVIST [Suspect]
     Indication: NEUROLOGICAL EXAMINATION
     Dosage: 15 ML, ONCE
     Route: 042
     Dates: start: 20140116, end: 20140116

REACTIONS (2)
  - Vomiting [Not Recovered/Not Resolved]
  - Nausea [Not Recovered/Not Resolved]
